FAERS Safety Report 24119193 (Version 1)
Quarter: 2024Q3

REPORT INFORMATION
  Report Type: Spontaneous
  Country: US (occurrence: None)
  Receive Date: 20240718
  Receipt Date: 20240718
  Transmission Date: 20241016
  Serious: Yes (Hospitalization)
  Sender: Public
  Company Number: None

PATIENT
  Sex: Male

DRUGS (5)
  1. NOVOSEVEN RT [Suspect]
     Active Substance: COAGULATION FACTOR VIIA RECOMBINANT HUMAN
     Indication: Factor VIII deficiency
     Dosage: FREQUENCY : EVERY 3 HOURS;?
     Route: 042
     Dates: start: 201811
  2. NOVOSEVEN RT [Suspect]
     Active Substance: COAGULATION FACTOR VIIA RECOMBINANT HUMAN
     Indication: Factor VIII deficiency
     Dosage: FREQUENCY : EVERY 3 HOURS;?
     Route: 042
     Dates: start: 201811
  3. BLUNT FILTER NEEDLE [Concomitant]
  4. BUTTERFLY NEEDLE INF SET [Concomitant]
  5. HEMIBRA SDV [Concomitant]

REACTIONS (1)
  - Haemorrhage [None]
